FAERS Safety Report 19608235 (Version 1)
Quarter: 2021Q3

REPORT INFORMATION
  Report Type: Spontaneous
  Country: US (occurrence: US)
  Receive Date: 20210723
  Receipt Date: 20210723
  Transmission Date: 20211014
  Serious: Yes (Hospitalization)
  Sender: FDA-Public Use
  Company Number: None

PATIENT
  Age: 74 Year
  Sex: Male

DRUGS (6)
  1. CARVEDILOL. [Concomitant]
     Active Substance: CARVEDILOL
  2. AMBRISENTAN [Suspect]
     Active Substance: AMBRISENTAN
     Indication: PULMONARY ARTERIAL HYPERTENSION
     Route: 048
     Dates: start: 20150702
  3. PRAVASTATIN. [Concomitant]
     Active Substance: PRAVASTATIN
  4. WARFARIN [Concomitant]
     Active Substance: WARFARIN
  5. TAMSULOSIN [Concomitant]
     Active Substance: TAMSULOSIN
  6. DIALYVITE [Concomitant]
     Active Substance: ASCORBIC ACID\BIOTIN\CALCIUM PANTOTHENATE\COBALAMIN\FOLIC ACID\NIACINAMIDE\PYRIDOXINE HYDROCHLORIDE\RIBOFLAVIN\THIAMINE MONONITRATE

REACTIONS (3)
  - Therapy interrupted [None]
  - Procedural complication [None]
  - Surgery [None]

NARRATIVE: CASE EVENT DATE: 20210701
